FAERS Safety Report 15516765 (Version 1)
Quarter: 2018Q4

REPORT INFORMATION
  Report Type: Spontaneous
  Country: FR (occurrence: FR)
  Receive Date: 20181017
  Receipt Date: 20181017
  Transmission Date: 20190205
  Serious: Yes (Hospitalization)
  Sender: FDA-Public Use
  Company Number: FR-TEVA-2018-FR-965078

PATIENT
  Age: 92 Year
  Sex: Female
  Weight: 70 kg

DRUGS (6)
  1. HEMIGOXINE NATIVELLE 0,125 MG, COMPRIM? [Suspect]
     Active Substance: DIGOXIN
     Indication: POISONING DELIBERATE
     Route: 048
     Dates: start: 20180814, end: 20180814
  2. LASILIX FAIBLE 20 MG, COMPRIM? [Suspect]
     Active Substance: FUROSEMIDE
     Indication: POISONING DELIBERATE
     Route: 048
     Dates: start: 20180814, end: 20180814
  3. XARELTO [Suspect]
     Active Substance: RIVAROXABAN
     Indication: POISONING DELIBERATE
     Route: 048
     Dates: start: 20180814, end: 20180814
  4. DONORMYL (DOXYLAMINE\SODIUM BROMIDE\SODIUM PHOSPHATE, DIBASIC, ANHYDROUS\SODIUM SULFATE) [Suspect]
     Active Substance: DOXYLAMINE\SODIUM BROMIDE\SODIUM PHOSPHATE, DIBASIC, ANHYDROUS\SODIUM SULFATE
     Indication: POISONING DELIBERATE
     Route: 048
     Dates: start: 20180814, end: 20180814
  5. RISPERIDONE. [Suspect]
     Active Substance: RISPERIDONE
     Indication: POISONING DELIBERATE
     Route: 048
     Dates: start: 20180814, end: 20180814
  6. DEPAKOTE [Suspect]
     Active Substance: DIVALPROEX SODIUM
     Indication: POISONING DELIBERATE
     Route: 048
     Dates: start: 20180814, end: 20180814

REACTIONS (4)
  - Somnolence [Recovered/Resolved]
  - Prothrombin time shortened [Recovered/Resolved]
  - Hypotension [Recovered/Resolved]
  - Acute kidney injury [Recovered/Resolved]

NARRATIVE: CASE EVENT DATE: 20180814
